FAERS Safety Report 8810314 (Version 1)
Quarter: 2012Q4

REPORT INFORMATION
  Report Type: 
  Country: IN (occurrence: IN)
  Receive Date: 20120926
  Receipt Date: 20120926
  Transmission Date: 20130627
  Serious: Yes (Death, Other)
  Sender: FDA-Public Use
  Company Number: PHHY2012IN083364

PATIENT
  Age: 76 Year
  Sex: Male

DRUGS (1)
  1. DIOVAN [Suspect]
     Indication: HYPERTENSION
     Dosage: 160 mg, UNK
     Dates: start: 200305

REACTIONS (3)
  - Cardiac arrest [Fatal]
  - Diabetes mellitus [Unknown]
  - Ejection fraction decreased [Unknown]
